FAERS Safety Report 6867386-X (Version None)
Quarter: 2010Q3

REPORT INFORMATION
  Report Type: 
  Country: None (occurrence: None)
  Receive Date: 20100722
  Receipt Date: 20100715
  Transmission Date: 20110219
  Serious: Yes (Death, Life-Threatening)
  Sender: FDA-Public Use
  Company Number: DE-JNJFOC-20100705213

PATIENT
  Age: 5 Decade
  Sex: Male

DRUGS (2)
  1. ABCIXIMAB [Suspect]
     Indication: MYOCARDIAL INFARCTION
     Route: 042
  2. ABCIXIMAB [Suspect]
     Route: 042

REACTIONS (1)
  - BACTERIAL SEPSIS [None]
